FAERS Safety Report 21491773 (Version 2)
Quarter: 2022Q4

REPORT INFORMATION
  Report Type: Report from Study
  Country: BR (occurrence: BR)
  Receive Date: 20221021
  Receipt Date: 20221121
  Transmission Date: 20230113
  Serious: Yes (Hospitalization, Other)
  Sender: FDA-Public Use
  Company Number: BR-NOVARTISPH-NVSC2022BR236947

PATIENT
  Age: 81 Year
  Sex: Female

DRUGS (7)
  1. EXELON [Suspect]
     Active Substance: RIVASTIGMINE TARTRATE
     Indication: Cognitive disorder
     Dosage: 9.5 MG, QD PATCH 10 (CM2)
     Route: 062
     Dates: start: 2019
  2. EXELON [Suspect]
     Active Substance: RIVASTIGMINE TARTRATE
     Dosage: 9.5 MG, QD PATCH 10 (CM2)
     Route: 062
     Dates: start: 2019
  3. CHOLECALCIFEROL [Concomitant]
     Active Substance: CHOLECALCIFEROL
     Indication: Vitamin D abnormal
     Dosage: 7000 IU, Q2W
     Route: 065
  4. VITAMIN B12 [Concomitant]
     Active Substance: CYANOCOBALAMIN
     Indication: Vitamin B12 abnormal
     Dosage: UNK, Q2W
     Route: 065
  5. ROSUVASTATIN [Concomitant]
     Active Substance: ROSUVASTATIN
     Indication: Blood cholesterol abnormal
     Dosage: 25 MG, QD
     Route: 065
  6. ROSUVASTATIN [Concomitant]
     Active Substance: ROSUVASTATIN
     Dosage: 5 MG, QD
     Route: 065
  7. XALATAN [Concomitant]
     Active Substance: LATANOPROST
     Indication: Intraocular pressure increased
     Dosage: 1 DOSAGE FORM, QD
     Route: 065

REACTIONS (6)
  - Pneumonia [Recovered/Resolved]
  - Memory impairment [Recovered/Resolved]
  - Confusional state [Recovered/Resolved]
  - Varicose vein [Unknown]
  - Oedema peripheral [Unknown]
  - Inappropriate schedule of product administration [Unknown]

NARRATIVE: CASE EVENT DATE: 20221011
